FAERS Safety Report 9542601 (Version 4)
Quarter: 2014Q1

REPORT INFORMATION
  Report Type: Spontaneous
  Country: US (occurrence: US)
  Receive Date: 20130923
  Receipt Date: 20140331
  Transmission Date: 20141002
  Serious: Yes (Hospitalization, Other)
  Sender: FDA-Public Use
  Company Number: US-PFIZER INC-2013130082

PATIENT
  Age: 45 Year
  Sex: Male

DRUGS (4)
  1. DILANTIN [Suspect]
     Indication: CONVULSION
     Dosage: 300 MG, 1X/DAY (THREE CAPSULES ONCE DAILY AT BED TIME)
     Route: 048
     Dates: start: 20000221, end: 200003
  2. DECADRON [Concomitant]
     Dosage: 4 MG, 3X/DAY (FOR EVERY EIGHT HOURS)
     Route: 042
     Dates: start: 20000221, end: 20000421
  3. ZANTAC [Concomitant]
     Dosage: 150 MG, 2X/DAY
     Dates: start: 20000306, end: 20000329
  4. PAXIL [Concomitant]
     Dosage: 20 MG, 1X/DAY
     Dates: start: 20000306, end: 20000329

REACTIONS (2)
  - Stevens-Johnson syndrome [Unknown]
  - Toxic epidermal necrolysis [Unknown]
